FAERS Safety Report 25299812 (Version 1)
Quarter: 2025Q2

REPORT INFORMATION
  Report Type: Spontaneous
  Country: AU (occurrence: AU)
  Receive Date: 20250512
  Receipt Date: 20250512
  Transmission Date: 20250717
  Serious: Yes (Other)
  Sender: ALKEM
  Company Number: None

PATIENT
  Age: 43 Year
  Sex: Female

DRUGS (1)
  1. OLANZAPINE [Suspect]
     Active Substance: OLANZAPINE
     Indication: Product used for unknown indication
     Route: 065

REACTIONS (9)
  - Faecaloma [Unknown]
  - Loss of consciousness [Unknown]
  - Urinary retention [Unknown]
  - Vision blurred [Unknown]
  - Weight decreased [Unknown]
  - Dehydration [Unknown]
  - Dizziness [Unknown]
  - Dry mouth [Unknown]
  - Dyspnoea [Unknown]
